FAERS Safety Report 4277919-8 (Version None)
Quarter: 2004Q1

REPORT INFORMATION
  Report Type: 
  Country: None (occurrence: None)
  Receive Date: 20040123
  Receipt Date: 20040114
  Transmission Date: 20041129
  Serious: Yes (Other)
  Sender: FDA-Public Use
  Company Number: JP-GLAXOSMITHKLINE-B0319833A

PATIENT
  Age: 66 Year
  Sex: Female

DRUGS (6)
  1. AMOXICILLIN [Suspect]
     Indication: HELICOBACTER INFECTION
     Dosage: 750MG TWICE PER DAY
     Route: 048
     Dates: start: 20031025, end: 20031028
  2. OMEPRAZOLE [Suspect]
     Indication: HELICOBACTER INFECTION
     Dosage: 20MG TWICE PER DAY
     Route: 048
     Dates: start: 20031025, end: 20031028
  3. CLARITH [Suspect]
     Indication: HELICOBACTER INFECTION
     Dosage: 400MG TWICE PER DAY
     Route: 048
     Dates: start: 20031025, end: 20031028
  4. PRAVASTATIN SODIUM [Concomitant]
  5. NIFEDIPINE [Concomitant]
     Route: 065
  6. FAMOTIDINE [Concomitant]

REACTIONS (9)
  - DECREASED APPETITE [None]
  - DRUG HYPERSENSITIVITY [None]
  - HEPATIC FUNCTION ABNORMAL [None]
  - OEDEMA PERIPHERAL [None]
  - PITTING OEDEMA [None]
  - PULMONARY VALVE INCOMPETENCE [None]
  - RENAL IMPAIRMENT [None]
  - SINUS TACHYCARDIA [None]
  - URINE OUTPUT DECREASED [None]
